FAERS Safety Report 4814626-4 (Version None)
Quarter: 2005Q4

REPORT INFORMATION
  Report Type: 
  Country: None (occurrence: None)
  Receive Date: 20051028
  Receipt Date: 20051003
  Transmission Date: 20060501
  Serious: Yes (Other)
  Sender: FDA-Public Use
  Company Number: 2005-09-0927

PATIENT
  Age: 46 Year
  Sex: Female
  Weight: 65 kg

DRUGS (4)
  1. ZELITREX [Suspect]
     Indication: HERPES SIMPLEX
     Dosage: 500MG TWICE PER DAY
     Route: 048
     Dates: start: 20050209, end: 20050909
  2. ZOVIRAX [Suspect]
     Indication: HERPES SIMPLEX
     Dosage: 1TAB PER DAY
     Route: 048
     Dates: start: 20050209, end: 20050909
  3. VIRAFERON [Suspect]
     Indication: HEPATITIS C
     Dosage: 100MCG WEEKLY
     Route: 058
     Dates: start: 20050509, end: 20050909
  4. REBETOL [Suspect]
     Indication: HEPATITIS C
     Dosage: 1000MG PER DAY
     Route: 048
     Dates: start: 20050509, end: 20050909

REACTIONS (4)
  - DRUG INTERACTION [None]
  - LEUKOPENIA [None]
  - MENORRHAGIA [None]
  - THROMBOCYTOPENIA [None]
